FAERS Safety Report 9774658 (Version 2)
Quarter: 2014Q1

REPORT INFORMATION
  Report Type: Report from Study
  Country: JP (occurrence: JP)
  Receive Date: 20131220
  Receipt Date: 20140225
  Transmission Date: 20141002
  Serious: Yes (Hospitalization, Disabling)
  Sender: FDA-Public Use
  Company Number: JP-ROCHE-1321187

PATIENT
  Age: 80 Year
  Sex: Male

DRUGS (4)
  1. ALTEPLASE [Suspect]
     Indication: EMBOLIC STROKE
     Route: 042
     Dates: start: 20130525, end: 20130525
  2. RADICUT [Suspect]
     Indication: EMBOLIC STROKE
     Route: 041
     Dates: start: 20130525, end: 20130531
  3. GLYCEOL [Concomitant]
     Route: 041
     Dates: start: 20130531, end: 20130607
  4. ASPIRIN [Concomitant]

REACTIONS (1)
  - Haemorrhagic infarction [Recovered/Resolved with Sequelae]
